FAERS Safety Report 12456364 (Version 1)
Quarter: 2016Q2

REPORT INFORMATION
  Report Type: Spontaneous
  Country: CH (occurrence: CH)
  Receive Date: 20160610
  Receipt Date: 20160610
  Transmission Date: 20160815
  Serious: Yes (Disabling, Other)
  Sender: FDA-Public Use
  Company Number: PHHY2016CH079724

PATIENT
  Age: 54 Year
  Sex: Male
  Weight: 91.7 kg

DRUGS (1)
  1. REVOLADE [Suspect]
     Active Substance: ELTROMBOPAG
     Indication: THROMBOCYTOPENIA
     Dosage: 1 DF, QD (DOSAGE SCEDULE: 50 MG 3 DAYS AND 4 DAY 75 MG)
     Route: 065
     Dates: start: 201407, end: 201508

REACTIONS (1)
  - Blindness unilateral [Not Recovered/Not Resolved]

NARRATIVE: CASE EVENT DATE: 20150810
